FAERS Safety Report 17541424 (Version 1)
Quarter: 2020Q1

REPORT INFORMATION
  Report Type: Spontaneous
  Country: US (occurrence: US)
  Receive Date: 20200313
  Receipt Date: 20200313
  Transmission Date: 20200409
  Serious: Yes (Other)
  Sender: FDA-Public Use
  Company Number: US-UCBSA-2020009523

PATIENT
  Sex: Female
  Weight: 61.8 kg

DRUGS (2)
  1. VIMPAT [Suspect]
     Active Substance: LACOSAMIDE
     Dosage: 100 MILLIGRAM, 2X/DAY (BID)
     Route: 048
  2. VIMPAT [Suspect]
     Active Substance: LACOSAMIDE
     Indication: EPILEPSY
     Dosage: 200 MILLIGRAM, 2X/DAY (BID)
     Route: 048

REACTIONS (6)
  - Headache [Unknown]
  - Change in seizure presentation [Unknown]
  - Cognitive disorder [Unknown]
  - Dyspnoea [Unknown]
  - Generalised tonic-clonic seizure [Unknown]
  - Dizziness [Unknown]
